FAERS Safety Report 15712948 (Version 1)
Quarter: 2018Q4

REPORT INFORMATION
  Report Type: Spontaneous
  Country: DE (occurrence: DE)
  Receive Date: 20181212
  Receipt Date: 20181212
  Transmission Date: 20190205
  Serious: Yes (Other)
  Sender: FDA-Public Use
  Company Number: PHHY2018DE179888

PATIENT
  Sex: Female

DRUGS (1)
  1. COSENTYX [Suspect]
     Active Substance: SECUKINUMAB
     Indication: PSORIATIC ARTHROPATHY
     Dosage: 300 MG, UNK
     Route: 065
     Dates: end: 201811

REACTIONS (6)
  - Pharyngitis [Unknown]
  - Pruritus [Not Recovered/Not Resolved]
  - Drug effect decreased [Unknown]
  - Fungal infection [Unknown]
  - Gingivitis [Unknown]
  - Renal impairment [Unknown]
